FAERS Safety Report 12539292 (Version 1)
Quarter: 2016Q3

REPORT INFORMATION
  Report Type: Spontaneous
  Country: US (occurrence: None)
  Receive Date: 20160707
  Receipt Date: 20160707
  Transmission Date: 20161109
  Serious: No
  Sender: FDA-Public Use
  Company Number: None

PATIENT
  Age: 32 Year
  Sex: Female

DRUGS (2)
  1. SPRYCEL [Suspect]
     Active Substance: DASATINIB
     Indication: CHRONIC MYELOID LEUKAEMIA
     Dosage: 1 TAB BID PO
     Route: 048
     Dates: start: 201310
  2. MULITIVITAL TAB [Concomitant]

REACTIONS (2)
  - Bone pain [None]
  - Headache [None]

NARRATIVE: CASE EVENT DATE: 201311
